FAERS Safety Report 22147145 (Version 3)
Quarter: 2023Q2

REPORT INFORMATION
  Report Type: Spontaneous
  Country: US (occurrence: US)
  Receive Date: 20230328
  Receipt Date: 20230629
  Transmission Date: 20230722
  Serious: No
  Sender: FDA-Public Use
  Company Number: US-PFIZER INC-PV202300055007

PATIENT
  Age: 70 Year
  Sex: Female
  Weight: 51.71 kg

DRUGS (2)
  1. IBRANCE [Suspect]
     Active Substance: PALBOCICLIB
     Indication: Neoplasm malignant
     Dosage: 100 MG, CYCLIC (ONCE A DAY FOR 21 OF 28 DAYS)
  2. IBRANCE [Suspect]
     Active Substance: PALBOCICLIB
     Dosage: 125 MG, DAILY

REACTIONS (4)
  - Intestinal anastomosis [Unknown]
  - Short-bowel syndrome [Unknown]
  - Dumping syndrome [Unknown]
  - Product dispensing error [Unknown]
